FAERS Safety Report 7372914-4 (Version None)
Quarter: 2011Q1

REPORT INFORMATION
  Report Type: 
  Country: None (occurrence: None)
  Receive Date: 20110324
  Receipt Date: 20110316
  Transmission Date: 20110831
  Serious: Yes (Hospitalization)
  Sender: FDA-Public Use
  Company Number: FR-PFIZER INC-FRWYE426915FEB05

PATIENT
  Age: 45 Year
  Sex: Male

DRUGS (8)
  1. PREDNISONE [Concomitant]
     Dosage: 1 MG/KG, 1X/DAY
     Dates: start: 20040928, end: 20040930
  2. PREDNISONE [Concomitant]
     Dosage: 10 MG, UNK
  3. CELLCEPT [Concomitant]
     Dosage: 2 G, UNK
     Dates: start: 20040929
  4. PREDNISONE [Concomitant]
     Dosage: 0.5 MG/KG, 1X/DAY
     Dates: start: 20041001, end: 20041003
  5. RAPAMUNE [Suspect]
     Dosage: UNK
     Route: 048
     Dates: start: 20040928, end: 20041104
  6. SOLU-MEDROL [Concomitant]
     Dosage: 500 MG, SINGLE
     Route: 040
     Dates: start: 20040928, end: 20040928
  7. PREDNISONE [Concomitant]
     Dosage: 5 MG/KG, SINGLE
  8. THYMOGLOBULIN [Concomitant]
     Dosage: 75 MG, CYCLIC
     Dates: start: 20040928, end: 20041005

REACTIONS (1)
  - PYELOCALIECTASIS [None]
